FAERS Safety Report 18437130 (Version 2)
Quarter: 2020Q4

REPORT INFORMATION
  Report Type: Spontaneous
  Country: CN (occurrence: CN)
  Receive Date: 20201028
  Receipt Date: 20201104
  Transmission Date: 20210114
  Serious: Yes (Other)
  Sender: FDA-Public Use
  Company Number: CN-PFIZER INC-2020411421

PATIENT
  Age: 81 Year
  Sex: Female
  Weight: 56 kg

DRUGS (3)
  1. TIGECYCLINE. [Suspect]
     Active Substance: TIGECYCLINE
     Indication: PNEUMONIA KLEBSIELLA
     Dosage: 50 MG, 2X/DAY
     Route: 041
     Dates: start: 20200921, end: 20200925
  2. CEFOPERAZONE SODIUM/SULBACTAM SODIUM [Suspect]
     Active Substance: CEFOPERAZONE SODIUM\SULBACTAM SODIUM
     Indication: PYREXIA
     Dosage: 3 G, 2X/DAY
     Route: 041
     Dates: start: 20200910, end: 20200917
  3. MEROPENEM. [Suspect]
     Active Substance: MEROPENEM
     Indication: PNEUMONIA KLEBSIELLA
     Dosage: 1 G, 3X/DAY
     Route: 041
     Dates: start: 20200920, end: 20200925

REACTIONS (1)
  - Clostridium difficile colitis [Recovering/Resolving]

NARRATIVE: CASE EVENT DATE: 20200924
